FAERS Safety Report 16307822 (Version 1)
Quarter: 2019Q2

REPORT INFORMATION
  Report Type: Spontaneous
  Country: MX (occurrence: MX)
  Receive Date: 20190514
  Receipt Date: 20190514
  Transmission Date: 20190711
  Serious: Yes (Hospitalization, Other)
  Sender: FDA-Public Use
  Company Number: MX-ALVOGEN-2019-ALVOGEN-099691

PATIENT
  Age: 81 Year
  Sex: Male

DRUGS (4)
  1. TENORMIN [Suspect]
     Active Substance: ATENOLOL
     Indication: HYPERTENSION
     Route: 048
     Dates: start: 2013
  2. PARACETAMOL/PHENYLTOLOXAMINE [Concomitant]
     Indication: PERIPHERAL SWELLING
     Route: 048
     Dates: start: 20190414
  3. DABIGATRAN ETEXILATE MESILATE [Concomitant]
     Active Substance: DABIGATRAN ETEXILATE MESYLATE
     Indication: CARDIAC DISORDER
     Dosage: ONE FOURTH A TABLET A DAY
     Route: 048
     Dates: start: 2015
  4. DIGOXIN. [Concomitant]
     Active Substance: DIGOXIN
     Indication: CARDIAC DISORDER
     Dosage: HALF A TABLET A DAY
     Route: 048
     Dates: start: 2015

REACTIONS (5)
  - Pyrexia [Recovered/Resolved]
  - Discomfort [Recovered/Resolved]
  - Inflammation [Recovered/Resolved]
  - Cardiac disorder [Not Recovered/Not Resolved]
  - Abdominal pain upper [Recovered/Resolved]

NARRATIVE: CASE EVENT DATE: 2015
